FAERS Safety Report 15137456 (Version 2)
Quarter: 2018Q4

REPORT INFORMATION
  Report Type: Spontaneous
  Country: US (occurrence: US)
  Receive Date: 20180712
  Receipt Date: 20181018
  Transmission Date: 20190204
  Serious: Yes (Other)
  Sender: FDA-Public Use
  Company Number: US-NOVOPROD-607572

PATIENT
  Age: 60 Year
  Sex: Male
  Weight: 79.82 kg

DRUGS (4)
  1. HUMALOG [Concomitant]
     Active Substance: INSULIN LISPRO
     Indication: TYPE 1 DIABETES MELLITUS
     Dosage: SLIDING SCALE
  2. TRESIBA [Suspect]
     Active Substance: INSULIN DEGLUDEC
     Indication: TYPE 1 DIABETES MELLITUS
     Dosage: 24 U, QD IN THE EVENING
     Route: 058
     Dates: start: 201806, end: 20180622
  3. LEVEMIR [Suspect]
     Active Substance: INSULIN DETEMIR
     Indication: TYPE 1 DIABETES MELLITUS
     Dosage: 24 U, QD IN THE EVENING
     Route: 058
     Dates: end: 20180616
  4. LEVEMIR [Suspect]
     Active Substance: INSULIN DETEMIR
     Dosage: 24 U, QD IN THE EVENING
     Route: 058
     Dates: start: 201806

REACTIONS (1)
  - Blood glucose decreased [Recovered/Resolved]

NARRATIVE: CASE EVENT DATE: 20180620
